FAERS Safety Report 12244328 (Version 1)
Quarter: 2016Q2

REPORT INFORMATION
  Report Type: Spontaneous
  Country: IE (occurrence: IE)
  Receive Date: 20160407
  Receipt Date: 20160407
  Transmission Date: 20160815
  Serious: Yes (Hospitalization)
  Sender: FDA-Public Use
  Company Number: IE-ASTRAZENECA-2016SE34380

PATIENT
  Sex: Male

DRUGS (1)
  1. MERONEM [Suspect]
     Active Substance: MEROPENEM
     Dosage: 1600 MG IN 100 ML SODIUM CHLORIDE 0.9 PERCENT BP IN A SV 200 INTERMATE
     Route: 042

REACTIONS (1)
  - Heart rate increased [Recovering/Resolving]
